FAERS Safety Report 26172870 (Version 1)
Quarter: 2025Q4

REPORT INFORMATION
  Report Type: Spontaneous
  Country: JP (occurrence: JP)
  Receive Date: 20251218
  Receipt Date: 20251218
  Transmission Date: 20260119
  Serious: Yes (Other)
  Sender: CHEPLAPHARM
  Company Number: JP-CHEPLA-2025014097

PATIENT

DRUGS (1)
  1. GANCICLOVIR [Suspect]
     Active Substance: GANCICLOVIR
     Route: 042

REACTIONS (2)
  - Engraft failure [Unknown]
  - Cytopenia [Unknown]
